FAERS Safety Report 15721752 (Version 1)
Quarter: 2018Q4

REPORT INFORMATION
  Report Type: Report from Study
  Country: US (occurrence: US)
  Receive Date: 20181214
  Receipt Date: 20181214
  Transmission Date: 20190205
  Serious: Yes (Other)
  Sender: FDA-Public Use
  Company Number: US-TEVA-2018-US-985720

PATIENT
  Sex: Female

DRUGS (2)
  1. CLARAVIS [Suspect]
     Active Substance: ISOTRETINOIN
  2. CLARAVIS [Suspect]
     Active Substance: ISOTRETINOIN

REACTIONS (2)
  - Vomiting [Unknown]
  - Haematochezia [Unknown]
